FAERS Safety Report 10063273 (Version 1)
Quarter: 2014Q2

REPORT INFORMATION
  Report Type: Spontaneous
  Country: US (occurrence: US)
  Receive Date: 20140407
  Receipt Date: 20140407
  Transmission Date: 20141212
  Serious: No
  Sender: FDA-Public Use
  Company Number: US-BAYER-2014-043725

PATIENT
  Age: 36 Year
  Sex: Female
  Weight: 73.47 kg

DRUGS (4)
  1. MIDOL MENSTRUAL COMPLETE FORMULA [Suspect]
     Indication: DYSMENORRHOEA
     Dosage: 2 DF, PRN
     Route: 048
     Dates: start: 2014
  2. MIDOL TEEN FORMULA - MAXIMUM STRENGTH [Suspect]
     Indication: DYSMENORRHOEA
     Dosage: UNK
     Route: 048
  3. MIDOL EXTENDED RELIEF CAPLET [Suspect]
     Indication: DYSMENORRHOEA
     Dosage: UNK
     Route: 048
  4. MIDOL PM [Suspect]
     Indication: DYSMENORRHOEA
     Dosage: UNK
     Route: 048

REACTIONS (2)
  - Feeling jittery [Recovered/Resolved]
  - Drug ineffective [None]
